FAERS Safety Report 20257959 (Version 1)
Quarter: 2021Q4

REPORT INFORMATION
  Report Type: Spontaneous
  Country: US (occurrence: None)
  Receive Date: 20211229
  Receipt Date: 20211229
  Transmission Date: 20220303
  Serious: Yes (Death)
  Sender: FDA-Public Use
  Company Number: None

PATIENT
  Age: 59 Year
  Sex: Female
  Weight: 94.2 kg

DRUGS (2)
  1. ACTEMRA [Suspect]
     Active Substance: TOCILIZUMAB
     Indication: COVID-19
     Dosage: OTHER FREQUENCY : ONCE;?
     Route: 042
     Dates: start: 20211122, end: 20211122
  2. Normal Saline 0.9% [Concomitant]
     Dates: start: 20211122, end: 20211122

REACTIONS (4)
  - Pseudomonas infection [None]
  - Pneumonia serratia [None]
  - Death [None]
  - Intentional product use issue [None]

NARRATIVE: CASE EVENT DATE: 20211122
